FAERS Safety Report 16019999 (Version 1)
Quarter: 2019Q1

REPORT INFORMATION
  Report Type: Report from Study
  Country: CO (occurrence: CO)
  Receive Date: 20190228
  Receipt Date: 20190228
  Transmission Date: 20190418
  Serious: Yes (Death, Hospitalization)
  Sender: FDA-Public Use
  Company Number: CO-TAKEDA-2019TUS010812

PATIENT
  Age: 28 Year
  Sex: Male
  Weight: 76 kg

DRUGS (1)
  1. PONATINIB [Suspect]
     Active Substance: PONATINIB
     Indication: ACUTE LYMPHOCYTIC LEUKAEMIA
     Dosage: 15 MILLIGRAM, QD
     Route: 048
     Dates: start: 20180808

REACTIONS (2)
  - Neoplasm progression [Fatal]
  - Pyrexia [Unknown]

NARRATIVE: CASE EVENT DATE: 20190203
